FAERS Safety Report 4443796-5 (Version None)
Quarter: 2004Q3

REPORT INFORMATION
  Report Type: 
  Country: None (occurrence: None)
  Receive Date: 20040729
  Receipt Date: 20040119
  Transmission Date: 20050211
  Serious: Yes (Other)
  Sender: FDA-Public Use
  Company Number: USA-2004-0013426

PATIENT
  Age: 29 Year
  Sex: Male

DRUGS (3)
  1. MORPHINE SULFATE [Suspect]
  2. CODEINE (CODEINE) [Suspect]
  3. LORCET-HD [Suspect]

REACTIONS (1)
  - DRUG ABUSER [None]
